FAERS Safety Report 7984066-8 (Version None)
Quarter: 2011Q4

REPORT INFORMATION
  Report Type: 
  Country: None (occurrence: None)
  Receive Date: 20111216
  Receipt Date: 20111214
  Transmission Date: 20120403
  Serious: Yes (Death, Other)
  Sender: FDA-Public Use
  Company Number: TR-PFIZER INC-2011299713

PATIENT
  Age: 52 Year
  Sex: Male

DRUGS (6)
  1. SIMVASTATIN [Interacting]
     Dosage: UNK
     Route: 065
  2. LITHIUM [Interacting]
     Dosage: UNK
     Route: 065
  3. CARVEDILOL [Interacting]
     Dosage: UNK
     Route: 065
  4. RAMIPRIL [Suspect]
     Dosage: UNK
     Route: 065
  5. ACETYLSALICYLIC ACID SRT [Interacting]
     Dosage: UNK
     Route: 065
  6. DIPYRIDAMOLE [Interacting]
     Dosage: UNK
     Route: 065

REACTIONS (8)
  - DRUG INTERACTION [None]
  - HYPOTENSION [None]
  - ATAXIA [None]
  - ANTIPSYCHOTIC DRUG LEVEL INCREASED [None]
  - CONFUSIONAL STATE [None]
  - TOXICITY TO VARIOUS AGENTS [None]
  - BALANCE DISORDER [None]
  - LOSS OF CONSCIOUSNESS [None]
